FAERS Safety Report 10069716 (Version 3)
Quarter: 2014Q2

REPORT INFORMATION
  Report Type: Spontaneous
  Country: AR (occurrence: AR)
  Receive Date: 20140410
  Receipt Date: 20140501
  Transmission Date: 20141212
  Serious: Yes (Other)
  Sender: FDA-Public Use
  Company Number: AR-AMGEN INC.-ARGSP2014025369

PATIENT
  Age: 58 Year
  Sex: Female

DRUGS (7)
  1. ENBREL [Suspect]
     Indication: RHEUMATOID ARTHRITIS
     Dosage: 25 MG, 2X/WEEK
     Route: 065
     Dates: start: 20101023
  2. ARTRAIT                            /00113801/ [Concomitant]
     Dosage: 15 MG, WEEKLY
  3. NAPROXEN [Concomitant]
     Dosage: UNK
  4. PREDNISONE [Concomitant]
     Dosage: UNK
  5. OMEPRAZOL                          /00661201/ [Concomitant]
     Dosage: UNK
  6. LOSACOR [Concomitant]
     Indication: HYPERTENSION
     Dosage: 50 MG, QD
  7. ACETAMINOPHEN [Concomitant]
     Dosage: 1 MG, UNK

REACTIONS (4)
  - Enterocolitis [Recovered/Resolved]
  - Nausea [Recovered/Resolved]
  - Vomiting [Recovered/Resolved]
  - Headache [Recovered/Resolved]
